FAERS Safety Report 4753496-X (Version None)
Quarter: 2005Q3

REPORT INFORMATION
  Report Type: 
  Country: None (occurrence: None)
  Receive Date: 20050826
  Receipt Date: 20050817
  Transmission Date: 20060218
  Serious: Yes (Other)
  Sender: FDA-Public Use
  Company Number: A0570547A

PATIENT
  Sex: Female

DRUGS (2)
  1. ASPIRIN [Suspect]
     Indication: DRUG USE FOR UNKNOWN INDICATION
     Route: 048
  2. TUMS E-X TABLETS [Concomitant]
     Route: 048

REACTIONS (3)
  - BLOOD TEST ABNORMAL [None]
  - DYSPNOEA [None]
  - PAIN IN EXTREMITY [None]
